FAERS Safety Report 24847250 (Version 1)
Quarter: 2025Q1

REPORT INFORMATION
  Report Type: Spontaneous
  Country: US (occurrence: US)
  Receive Date: 20250116
  Receipt Date: 20250116
  Transmission Date: 20250409
  Serious: Yes (Life-Threatening, Hospitalization)
  Sender: STRIDES
  Company Number: US-STRIDES ARCOLAB LIMITED-2024SP012955

PATIENT
  Age: 53 Year
  Sex: Male

DRUGS (4)
  1. PREDNISOLONE [Suspect]
     Active Substance: PREDNISOLONE
     Indication: Obstructive sleep apnoea syndrome
     Route: 065
  2. FUROSEMIDE [Suspect]
     Active Substance: FUROSEMIDE
     Indication: Pulmonary hypertension
     Route: 065
  3. EPOPROSTENOL [Suspect]
     Active Substance: EPOPROSTENOL
     Indication: Pulmonary hypertension
     Route: 042
  4. MACITENTAN [Suspect]
     Active Substance: MACITENTAN
     Indication: Pulmonary hypertension
     Route: 065

REACTIONS (2)
  - Drug ineffective [Unknown]
  - Condition aggravated [Recovered/Resolved]
